FAERS Safety Report 11792835 (Version 2)
Quarter: 2015Q4

REPORT INFORMATION
  Report Type: Spontaneous
  Country: BR (occurrence: BR)
  Receive Date: 20151202
  Receipt Date: 20151222
  Transmission Date: 20160305
  Serious: Yes (Other)
  Sender: FDA-Public Use
  Company Number: PHHY2015BR155361

PATIENT
  Age: 8 Year
  Sex: Male
  Weight: 50 kg

DRUGS (1)
  1. TRILEPTAL [Suspect]
     Active Substance: OXCARBAZEPINE
     Indication: PARTIAL SEIZURES
     Dosage: 1 DF (ONE TABLET OF TRILEPTAL 300 MG 60 TABLETS), BID (AT 06.00 AM AND 06:00 PM)
     Route: 048
     Dates: start: 20150629

REACTIONS (2)
  - Partial seizures [Recovered/Resolved]
  - Loss of consciousness [Not Recovered/Not Resolved]

NARRATIVE: CASE EVENT DATE: 20151031
